FAERS Safety Report 21015932 (Version 1)
Quarter: 2022Q2

REPORT INFORMATION
  Report Type: Spontaneous
  Country: CA (occurrence: None)
  Receive Date: 20220628
  Receipt Date: 20220628
  Transmission Date: 20220721
  Serious: Yes (Death, Hospitalization)
  Sender: FDA-Public Use
  Company Number: CA-ROCHE-3124395

PATIENT
  Age: 89 Year
  Sex: Male

DRUGS (28)
  1. RITUXIMAB [Suspect]
     Active Substance: RITUXIMAB
     Indication: Ocular pemphigoid
     Dosage: DRUG DOSE FIRST ADMINISTERED IS 1000.0 MILLIGRAM
     Route: 041
  2. DILAUDID [Concomitant]
     Active Substance: HYDROMORPHONE HYDROCHLORIDE
  3. TRESIBA [Concomitant]
     Active Substance: INSULIN DEGLUDEC
  4. LINAGLIPTIN [Concomitant]
     Active Substance: LINAGLIPTIN
  5. DUTASTERIDE [Concomitant]
     Active Substance: DUTASTERIDE
  6. MOMETASONE [Concomitant]
     Active Substance: MOMETASONE
  7. DAPAGLIFLOZIN PROPANEDIOL [Concomitant]
     Active Substance: DAPAGLIFLOZIN PROPANEDIOL
  8. TOBRADEX [Concomitant]
     Active Substance: DEXAMETHASONE\TOBRAMYCIN
  9. DONEPEZIL [Concomitant]
     Active Substance: DONEPEZIL
  10. GLICLAZIDE [Concomitant]
     Active Substance: GLICLAZIDE
  11. QUETIAPINE [Concomitant]
     Active Substance: QUETIAPINE
  12. RAPAFLO [Concomitant]
     Active Substance: SILODOSIN
  13. RAPAFLO [Concomitant]
     Active Substance: SILODOSIN
  14. TYLENOL [Concomitant]
     Active Substance: ACETAMINOPHEN
  15. SOLU-MEDROL [Concomitant]
     Active Substance: METHYLPREDNISOLONE SODIUM SUCCINATE
  16. IPRATROPIUM [Concomitant]
     Active Substance: IPRATROPIUM
  17. PRAMOXINE [Concomitant]
     Active Substance: PRAMOXINE
  18. HYDROMORPHONE [Concomitant]
     Active Substance: HYDROMORPHONE
  19. BISOPROLOL [Concomitant]
     Active Substance: BISOPROLOL
  20. DEXTROMETHORPHAN HYDROBROMIDE [Concomitant]
     Active Substance: DEXTROMETHORPHAN HYDROBROMIDE
  21. LAMISIL [Concomitant]
     Active Substance: TERBINAFINE HYDROCHLORIDE
  22. MINERAL OIL [Concomitant]
     Active Substance: MINERAL OIL
  23. RESTASIS [Concomitant]
     Active Substance: CYCLOSPORINE
  24. SENOKOT [Concomitant]
     Active Substance: SENNOSIDES
  25. POLYETHYLENE GLYCOL 3350 [Concomitant]
     Active Substance: POLYETHYLENE GLYCOL 3350
  26. VITAMIN D3 [Concomitant]
     Active Substance: CHOLECALCIFEROL
  27. PREDNISONE [Concomitant]
     Active Substance: PREDNISONE
  28. BENADRYL [Concomitant]
     Active Substance: DIPHENHYDRAMINE HYDROCHLORIDE

REACTIONS (6)
  - Death [Fatal]
  - Gait disturbance [Fatal]
  - Fatigue [Fatal]
  - Lung cancer metastatic [Fatal]
  - Asthenia [Fatal]
  - Fall [Fatal]
